FAERS Safety Report 10442178 (Version 5)
Quarter: 2014Q4

REPORT INFORMATION
  Report Type: Spontaneous
  Country: IT (occurrence: IT)
  Receive Date: 20140909
  Receipt Date: 20141007
  Transmission Date: 20150528
  Serious: Yes (Hospitalization)
  Sender: FDA-Public Use
  Company Number: IT-PFIZER INC-2014246995

PATIENT
  Age: 77 Year
  Sex: Female
  Weight: 80 kg

DRUGS (13)
  1. CARDIOASPIRIN [Concomitant]
     Active Substance: ASPIRIN
     Dosage: 100 MG, UNK
     Route: 048
     Dates: end: 20140830
  2. SEROQUEL [Concomitant]
     Active Substance: QUETIAPINE FUMARATE
     Indication: PSYCHOTIC DISORDER
     Dosage: 25 MG, UNK
     Route: 048
     Dates: end: 20140829
  3. TAVANIC [Interacting]
     Active Substance: LEVOFLOXACIN
     Indication: SKIN BACTERIAL INFECTION
     Dosage: 500 MG, DAILY
     Route: 048
     Dates: start: 20140829, end: 20140830
  4. TAVANIC [Interacting]
     Active Substance: LEVOFLOXACIN
     Indication: STAPHYLOCOCCAL SKIN INFECTION
  5. LASITONE [Concomitant]
     Active Substance: FUROSEMIDE\SPIRONOLACTONE
     Indication: DIURETIC THERAPY
     Dosage: 62 MG, UNK
     Route: 048
     Dates: end: 20140830
  6. LOBIVON [Concomitant]
     Active Substance: NEBIVOLOL HYDROCHLORIDE
     Indication: HYPERTENSION
     Dosage: 2.5 MG, UNK
     Route: 048
     Dates: end: 20140903
  7. EN [Concomitant]
     Active Substance: DELORAZEPAM
     Indication: ANXIOLYTIC THERAPY
     Dosage: 0.5 MG, 1X/DAY (HALF A TABLET IN THE EVENING)
     Route: 048
     Dates: end: 20140829
  8. DIFLUCAN [Suspect]
     Active Substance: FLUCONAZOLE
     Indication: FUNGAL SKIN INFECTION
     Dosage: 100 MG, DAILY
     Route: 048
     Dates: start: 20140814, end: 20140829
  9. DIAMICRON MR [Interacting]
     Active Substance: GLICLAZIDE
     Indication: TYPE 2 DIABETES MELLITUS
     Dosage: 30 MG, DAILY
     Route: 048
     Dates: end: 20140830
  10. TAVANIC [Interacting]
     Active Substance: LEVOFLOXACIN
     Indication: PSEUDOMONAS INFECTION
  11. HYDROCHLOROTHIAZIDE\VALSARTAN [Concomitant]
     Active Substance: HYDROCHLOROTHIAZIDE\VALSARTAN
     Indication: HYPERTENSION
     Dosage: 332.5 MG, UNK
     Route: 048
     Dates: end: 20140830
  12. TAVANIC [Interacting]
     Active Substance: LEVOFLOXACIN
     Indication: ENTEROCOCCAL INFECTION
  13. VENLAFAXINE HYDROCHLORIDE. [Concomitant]
     Active Substance: VENLAFAXINE HYDROCHLORIDE
     Indication: DEPRESSION
     Dosage: 75 MG, UNK
     Route: 048
     Dates: end: 20140830

REACTIONS (4)
  - Drug interaction [Recovering/Resolving]
  - Hypoglycaemia [Recovering/Resolving]
  - Acute kidney injury [Recovering/Resolving]
  - Asthenia [Recovering/Resolving]

NARRATIVE: CASE EVENT DATE: 20140831
